FAERS Safety Report 9222727 (Version 1)
Quarter: 2013Q1

REPORT INFORMATION
  Report Type: Spontaneous
  Country: US (occurrence: US)
  Receive Date: 20120914
  Receipt Date: 20120914
  Transmission Date: 20140127
  Serious: Yes (Other)
  Sender: FDA-Public Use
  Company Number: JPI-P-021382

PATIENT
  Age: 44 Year
  Sex: Male
  Weight: 69.4 kg

DRUGS (5)
  1. XYREM (500 MG/ML SOLUTION)(SODIUM OXYBATE) [Suspect]
     Route: 048
     Dates: start: 201105
  2. FLUTICASONE W/SALMETROL [Concomitant]
  3. ALBUTEROL [Concomitant]
  4. METHYLPHENIDAE HYDROCHLORIDE [Concomitant]
  5. SILDENAFIL CITRATE [Concomitant]

REACTIONS (5)
  - Weight decreased [None]
  - Headache [None]
  - Dizziness [None]
  - Dysphagia [None]
  - Nausea [None]
